FAERS Safety Report 8193133-8 (Version None)
Quarter: 2012Q1

REPORT INFORMATION
  Report Type: 
  Country: None (occurrence: None)
  Receive Date: 20120221
  Receipt Date: 20120112
  Transmission Date: 20120608
  Serious: No
  Sender: FDA-Public Use
  Company Number: 1000024458

PATIENT
  Age: 64 Year
  Sex: Female

DRUGS (10)
  1. VIIBRYD [Suspect]
     Indication: DEPRESSION
     Dosage: 10 MG (10 MG, 1IN 1 D), ORAL; 10 MG (20 MG, 1 IN 1 D), ORAL
     Route: 048
     Dates: start: 20110101, end: 20110101
  2. VIIBRYD [Suspect]
     Indication: ANXIETY
     Dosage: 10 MG (10 MG, 1IN 1 D), ORAL; 10 MG (20 MG, 1 IN 1 D), ORAL
     Route: 048
     Dates: start: 20110101, end: 20110101
  3. VIIBRYD [Suspect]
     Indication: DEPRESSION
     Dosage: 10 MG (10 MG, 1IN 1 D), ORAL; 10 MG (20 MG, 1 IN 1 D), ORAL
     Route: 048
     Dates: start: 20110801, end: 20110101
  4. VIIBRYD [Suspect]
     Indication: ANXIETY
     Dosage: 10 MG (10 MG, 1IN 1 D), ORAL; 10 MG (20 MG, 1 IN 1 D), ORAL
     Route: 048
     Dates: start: 20110801, end: 20110101
  5. VIIBRYD [Suspect]
     Indication: DEPRESSION
     Dosage: 40 MG (40 MG, 1 IN 1 D), ORAL; 20 MG (20 MG, 1 IN 1D), ORAL
     Route: 048
     Dates: start: 20110101, end: 20110929
  6. VIIBRYD [Suspect]
     Indication: ANXIETY
     Dosage: 40 MG (40 MG, 1 IN 1 D), ORAL; 20 MG (20 MG, 1 IN 1D), ORAL
     Route: 048
     Dates: start: 20110101, end: 20110929
  7. VIIBRYD [Suspect]
     Indication: DEPRESSION
     Dosage: 40 MG (40 MG, 1 IN 1 D), ORAL; 20 MG (20 MG, 1 IN 1D), ORAL
     Route: 048
     Dates: start: 20110930, end: 20111002
  8. VIIBRYD [Suspect]
     Indication: ANXIETY
     Dosage: 40 MG (40 MG, 1 IN 1 D), ORAL; 20 MG (20 MG, 1 IN 1D), ORAL
     Route: 048
     Dates: start: 20110930, end: 20111002
  9. TOPROL (METOPROLOL SUCCINATE) (METOPROLOL SUCCINATE) [Concomitant]
  10. PAIN MEDICATION NOS (PAIN MEDICATION NOS)(PAIN MEDICATION NOS) [Concomitant]

REACTIONS (3)
  - TREMOR [None]
  - DIARRHOEA [None]
  - NAUSEA [None]
